FAERS Safety Report 9230235 (Version 1)
Quarter: 2013Q2

REPORT INFORMATION
  Report Type: Spontaneous
  Country: DE (occurrence: None)
  Receive Date: 20130411
  Receipt Date: 20130411
  Transmission Date: 20140414
  Serious: Yes (Hospitalization)
  Sender: FDA-Public Use
  Company Number: DE-DEXPHARM-20130146

PATIENT
  Age: 14 Year
  Sex: Female
  Weight: 48 kg

DRUGS (13)
  1. PREDNISONE [Concomitant]
  2. PROGRAF [Concomitant]
  3. VIGANTOLETTEN [Concomitant]
  4. OMEPRAZOLE [Suspect]
     Indication: OESOPHAGITIS
     Route: 048
     Dates: start: 201003
  5. AMIODIPINE [Concomitant]
  6. ATENOLOL [Concomitant]
  7. AZATHIOPRINE [Concomitant]
  8. BICANORM [Concomitant]
  9. ENALAPRIL [Concomitant]
  10. FERRO SANOL [Concomitant]
  11. LEVOTHYROXINE [Concomitant]
  12. NEORECORMON 5000 IU SOLUTION [Concomitant]
  13. NOVALGIN [Concomitant]

REACTIONS (4)
  - Pain in extremity [None]
  - Muscle spasms [None]
  - Gait disturbance [None]
  - Hypomagnesaemia [None]
